FAERS Safety Report 10795164 (Version 1)
Quarter: 2015Q1

REPORT INFORMATION
  Report Type: Spontaneous
  Country: US (occurrence: US)
  Receive Date: 20150214
  Receipt Date: 20150214
  Transmission Date: 20150721
  Serious: No
  Sender: FDA-Public Use
  Company Number: US-009507513-1502USA005018

PATIENT
  Sex: Female

DRUGS (1)
  1. AFRIN [Suspect]
     Active Substance: OXYMETAZOLINE
     Indication: NASAL DRYNESS
     Dosage: UNK, UNKNOWN
     Route: 045

REACTIONS (2)
  - Condition aggravated [Unknown]
  - Drug ineffective [Unknown]
